FAERS Safety Report 6676193-2 (Version None)
Quarter: 2010Q2

REPORT INFORMATION
  Report Type: 
  Country: None (occurrence: None)
  Receive Date: 20100412
  Receipt Date: 20100401
  Transmission Date: 20101027
  Serious: Yes (Other)
  Sender: FDA-Public Use
  Company Number: US-JNJFOC-20100401099

PATIENT
  Sex: Female
  Weight: 87.2 kg

DRUGS (5)
  1. REMICADE [Suspect]
     Indication: CROHN'S DISEASE
     Route: 042
     Dates: start: 20070302
  2. REMICADE [Suspect]
     Route: 042
     Dates: start: 20070302
  3. REMICADE [Suspect]
     Route: 042
     Dates: start: 20070302
  4. PREVACID [Concomitant]
  5. CELEBREX [Concomitant]

REACTIONS (3)
  - DIZZINESS [None]
  - HEADACHE [None]
  - INFUSION RELATED REACTION [None]
